FAERS Safety Report 25537113 (Version 1)
Quarter: 2025Q3

REPORT INFORMATION
  Report Type: Other
  Country: CA (occurrence: CA)
  Receive Date: 20250710
  Receipt Date: 20250710
  Transmission Date: 20251020
  Serious: Yes (Hospitalization, Other)
  Sender: TOLMAR
  Company Number: CA-Tolmar-TLM-2025-04343

PATIENT
  Age: 85 Year
  Sex: Male

DRUGS (2)
  1. LEUPROLIDE ACETATE [Suspect]
     Active Substance: LEUPROLIDE ACETATE
     Indication: Prostate cancer
     Route: 030
  2. ELIGARD [Suspect]
     Active Substance: LEUPROLIDE ACETATE
     Indication: Prostate cancer

REACTIONS (3)
  - Neoplasm malignant [Not Recovered/Not Resolved]
  - Hospitalisation [Not Recovered/Not Resolved]
  - Surgery [Not Recovered/Not Resolved]
